FAERS Safety Report 5084454-6 (Version None)
Quarter: 2006Q3

REPORT INFORMATION
  Report Type: 
  Country: None (occurrence: None)
  Receive Date: 20060817
  Receipt Date: 20060817
  Transmission Date: 20061208
  Serious: Yes (Life-Threatening, Hospitalization)
  Sender: FDA-Public Use
  Company Number: None

PATIENT
  Age: 18 Year
  Sex: Female
  Weight: 56.3 kg

DRUGS (5)
  1. ONCASPAR [Suspect]
     Indication: B PRECURSOR TYPE ACUTE LEUKAEMIA
     Dosage: 4100 INTERNATIONAL UNITS X1 IM
     Route: 030
     Dates: start: 20060815, end: 20060815
  2. METHOTREXATE [Concomitant]
  3. 6-MP [Concomitant]
  4. ARA-C [Concomitant]
  5. VINCRISTINE [Concomitant]

REACTIONS (11)
  - GASTROINTESTINAL HAEMORRHAGE [None]
  - HYPOTENSION [None]
  - PARAESTHESIA ORAL [None]
  - PLATELET COUNT DECREASED [None]
  - PRURITUS [None]
  - PULMONARY HAEMORRHAGE [None]
  - PULMONARY OEDEMA [None]
  - RASH [None]
  - THROAT TIGHTNESS [None]
  - URTICARIA GENERALISED [None]
  - VOMITING [None]
